FAERS Safety Report 23968907 (Version 5)
Quarter: 2024Q4

REPORT INFORMATION
  Report Type: Report from Study
  Country: CA (occurrence: CA)
  Receive Date: 20240612
  Receipt Date: 20241011
  Transmission Date: 20250114
  Serious: Yes (Other)
  Sender: SANDOZ
  Company Number: CA-SANDOZ-SDZ2024CA048283

PATIENT
  Age: 33 Year
  Sex: Female

DRUGS (5)
  1. HYRIMOZ [Suspect]
     Active Substance: ADALIMUMAB-ADAZ
     Indication: Colitis ulcerative
     Dosage: 160MG SC SEM0, 80MG SEM2 PUIS 40MG Q2SEMAINES ? PARTIR DE LA SEM4;EVERY TWO WEEKS
     Route: 058
     Dates: start: 20240404
  2. HYRIMOZ [Suspect]
     Active Substance: ADALIMUMAB-ADAZ
     Dosage: 40 MG, Q2W
     Route: 058
     Dates: start: 20240502
  3. HYRIMOZ [Suspect]
     Active Substance: ADALIMUMAB-ADAZ
     Dosage: 80MG SC Q2SEMAINES;OTHER
     Route: 058
     Dates: start: 20240404
  4. HYRIMOZ [Suspect]
     Active Substance: ADALIMUMAB-ADAZ
     Dosage: 80 MG, Q2W
     Route: 058
     Dates: start: 20240418
  5. HYRIMOZ [Suspect]
     Active Substance: ADALIMUMAB-ADAZ
     Dosage: 80 MG, Q2W
     Route: 058

REACTIONS (9)
  - Haematochezia [Unknown]
  - Defaecation urgency [Unknown]
  - Bowel movement irregularity [Unknown]
  - Mucous stools [Unknown]
  - Pain [Unknown]
  - Frequent bowel movements [Unknown]
  - Back pain [Unknown]
  - Malaise [Unknown]
  - Off label use [Unknown]

NARRATIVE: CASE EVENT DATE: 20240501
